FAERS Safety Report 10239063 (Version 2)
Quarter: 2014Q3

REPORT INFORMATION
  Report Type: Report from Study
  Country: US (occurrence: US)
  Receive Date: 20140616
  Receipt Date: 20140710
  Transmission Date: 20150326
  Serious: Yes (Hospitalization)
  Sender: FDA-Public Use
  Company Number: US-ACTELION-A-NJ2014-100243

PATIENT
  Age: 61 Year
  Sex: Female

DRUGS (3)
  1. REVATIO [Concomitant]
     Active Substance: SILDENAFIL CITRATE
  2. VELETRI [Suspect]
     Active Substance: EPOPROSTENOL
     Indication: PULMONARY ARTERIAL HYPERTENSION
     Dosage: 65 NG/KG, PER MIN
     Route: 042
     Dates: start: 20120904
  3. VELETRI [Suspect]
     Active Substance: EPOPROSTENOL
     Dosage: 84 NG/KG, PER MIN
     Route: 041

REACTIONS (2)
  - Bronchitis [Unknown]
  - Atypical pneumonia [Unknown]

NARRATIVE: CASE EVENT DATE: 20140506
